FAERS Safety Report 5308229-5 (Version None)
Quarter: 2007Q2

REPORT INFORMATION
  Report Type: 
  Country: None (occurrence: None)
  Receive Date: 20070426
  Receipt Date: 20070416
  Transmission Date: 20071010
  Serious: Yes (Life-Threatening, Hospitalization, Other)
  Sender: FDA-Public Use
  Company Number: FR-NOVOPROD-262720

PATIENT
  Sex: Female

DRUGS (5)
  1. LEVEMIR [Suspect]
     Indication: DIABETES MELLITUS INSULIN-DEPENDENT
     Dosage: 3 IU, QD
     Route: 058
  2. NOVORAPID FLEXPEN [Suspect]
     Indication: DIABETES MELLITUS INSULIN-DEPENDENT
     Dosage: .5 IU, TID
     Route: 058
  3. LASIX [Concomitant]
     Indication: RENAL FAILURE CHRONIC
  4. TRIATEC [Concomitant]
     Indication: DRUG USE FOR UNKNOWN INDICATION
     Route: 048
  5. IMODIUM                            /00384302/ [Concomitant]
     Indication: DRUG USE FOR UNKNOWN INDICATION
     Dosage: 6 TAB, QD
     Route: 048

REACTIONS (2)
  - DRUG ABUSER [None]
  - HYPOGLYCAEMIA [None]
